FAERS Safety Report 7637994-7 (Version None)
Quarter: 2011Q3

REPORT INFORMATION
  Report Type: 
  Country: None (occurrence: None)
  Receive Date: 20110727
  Receipt Date: 20110713
  Transmission Date: 20111222
  Serious: Yes (Hospitalization, Other)
  Sender: FDA-Public Use
  Company Number: US-ELI_LILLY_AND_COMPANY-US201104004758

PATIENT
  Sex: Female

DRUGS (2)
  1. FORTEO [Suspect]
     Dosage: 20 UG, QD
     Route: 065
  2. FORTEO [Suspect]
     Indication: OSTEOPOROSIS
     Dosage: 20 UG, QD
     Route: 065
     Dates: start: 20101012

REACTIONS (12)
  - PAIN [None]
  - ARTHRALGIA [None]
  - CHEST PAIN [None]
  - BLOOD PRESSURE DECREASED [None]
  - PAIN IN EXTREMITY [None]
  - DECREASED APPETITE [None]
  - EPIDURAL ANAESTHESIA [None]
  - ASTHENIA [None]
  - ELECTROCARDIOGRAM ABNORMAL [None]
  - PYREXIA [None]
  - OSTEOPOROSIS [None]
  - SINUSITIS [None]
